FAERS Safety Report 7747716-7 (Version None)
Quarter: 2011Q3

REPORT INFORMATION
  Report Type: 
  Country: None (occurrence: None)
  Receive Date: 20110913
  Receipt Date: 20110824
  Transmission Date: 20111222
  Serious: Yes (Other)
  Sender: FDA-Public Use
  Company Number: PHHY2011BR76766

PATIENT
  Age: 91 Year
  Sex: Female

DRUGS (2)
  1. AMLODIPINE BESYLATE [Suspect]
     Route: 048
  2. HYDRALAZINE HYDROCHLORIDE [Concomitant]

REACTIONS (2)
  - RESPIRATORY DISORDER [None]
  - RENAL FAILURE [None]
